FAERS Safety Report 6662525-8 (Version None)
Quarter: 2010Q1

REPORT INFORMATION
  Report Type: 
  Country: None (occurrence: None)
  Receive Date: 20100329
  Receipt Date: 20100315
  Transmission Date: 20100710
  Serious: Yes (Other)
  Sender: FDA-Public Use
  Company Number: 2010AP000423

PATIENT
  Age: 60 Year
  Sex: Female

DRUGS (10)
  1. SIMVASTATIN [Suspect]
     Indication: CARDIAC DISORDER
     Dosage: 80 MG; UNKNOW; QD
  2. CLARITHROMYCIN [Suspect]
     Indication: LOWER RESPIRATORY TRACT INFECTION
     Dosage: 250 MG; UNKNOWN; BID
  3. QUETIAPINE (QUETIAPINE) [Concomitant]
  4. LITHIUM CARBONATE [Concomitant]
  5. PERICIAZINE (PERICIAZINE) [Concomitant]
  6. ESCITALOPRAM [Concomitant]
  7. DIAZEPAM [Concomitant]
  8. ASPIRIN [Concomitant]
  9. PERINDOPRIL ERBUMINE [Concomitant]
  10. DIGOXIN [Concomitant]

REACTIONS (8)
  - BLOOD IRON DECREASED [None]
  - CLONUS [None]
  - DRUG INTERACTION [None]
  - EYE MOVEMENT DISORDER [None]
  - HYPOTENSION [None]
  - LABILE BLOOD PRESSURE [None]
  - NEUROLEPTIC MALIGNANT SYNDROME [None]
  - TACHYCARDIA [None]
